FAERS Safety Report 17813837 (Version 1)
Quarter: 2020Q2

REPORT INFORMATION
  Report Type: Report from Study
  Country: ZA (occurrence: ZA)
  Receive Date: 20200521
  Receipt Date: 20200521
  Transmission Date: 20200714
  Serious: Yes (Other)
  Sender: FDA-Public Use
  Company Number: ZA-STI PHARMA LLC-2084075

PATIENT
  Age: 59 Year

DRUGS (6)
  1. CLOFAZINE (CLOFAZIMINE) [Suspect]
     Active Substance: CLOFAZIMINE
     Dates: start: 20181207
  2. BEDAQUILINE [Suspect]
     Active Substance: BEDAQUILINE
     Dates: start: 20181212
  3. AMINOSALICYLIC ACID [Suspect]
     Active Substance: AMINOSALICYLIC ACID
     Dates: start: 20181207
  4. ETHAMBUTOL HYDROCHLORIDE. [Suspect]
     Active Substance: ETHAMBUTOL HYDROCHLORIDE
     Indication: TUBERCULOSIS
     Dates: start: 20181207
  5. LINEZOLID. [Suspect]
     Active Substance: LINEZOLID
     Dates: start: 20181207, end: 20190711
  6. DELAMINID [Suspect]
     Active Substance: DELAMANID
     Dates: start: 20181207

REACTIONS (1)
  - Anaemia [Unknown]

NARRATIVE: CASE EVENT DATE: 20190214
